FAERS Safety Report 6028043-5 (Version None)
Quarter: 2008Q4

REPORT INFORMATION
  Report Type: 
  Country: None (occurrence: None)
  Receive Date: 20081231
  Receipt Date: 20081218
  Transmission Date: 20090506
  Serious: Yes (Hospitalization)
  Sender: FDA-Public Use
  Company Number: GXKR2008CH12177

PATIENT
  Age: 82 Year
  Sex: Male

DRUGS (11)
  1. FLUOXETINE [Suspect]
     Dosage: 20 MG, QD, ORAL
     Route: 048
     Dates: start: 20081024, end: 20081104
  2. RIFAMPICIN [Suspect]
     Dosage: 600 MG, QD, ORAL
     Route: 048
     Dates: start: 20081025, end: 20081103
  3. DEPAKENE [Suspect]
     Indication: EPILEPSY
     Dosage: 300 MG, BID, ORAL
     Route: 048
     Dates: end: 20081030
  4. NEXIUM [Concomitant]
  5. COVERSUM /SCH/ (PERINDOPRIL ERBUMINE) TABLET, 2 MG [Concomitant]
  6. POTASSIUM CHLORIDE [Concomitant]
  7. SODIUM CHLORIDE (SODIUM CHLORIDE) AMPOULE, 0.9 % [Concomitant]
  8. TORSEMIDE [Concomitant]
  9. NITRODERM (GLYCERYL TRINITRATE) PATCH, 50 MG [Concomitant]
  10. CLEXANE (ENOXAPARIN SODIUM, HEPARIN-FRACTION, SODIUM SALT) VIAL, 100 M [Concomitant]
  11. CIPROFLOXACIN [Concomitant]

REACTIONS (4)
  - DEPRESSED LEVEL OF CONSCIOUSNESS [None]
  - DRUG INTERACTION [None]
  - GENERAL PHYSICAL HEALTH DETERIORATION [None]
  - MUSCLE RIGIDITY [None]
